FAERS Safety Report 10468538 (Version 1)
Quarter: 2014Q3

REPORT INFORMATION
  Report Type: Spontaneous
  Country: DE (occurrence: DE)
  Receive Date: 20140922
  Receipt Date: 20140922
  Transmission Date: 20150326
  Serious: Yes (Hospitalization)
  Sender: FDA-Public Use
  Company Number: DE-BIOGENIDEC-2014BI096085

PATIENT
  Age: 64 Year
  Sex: Male

DRUGS (1)
  1. AVONEX [Suspect]
     Active Substance: INTERFERON BETA-1A
     Indication: MULTIPLE SCLEROSIS
     Route: 030
     Dates: start: 20040901, end: 20140717

REACTIONS (4)
  - Cough [Unknown]
  - Ileal fistula [Recovered/Resolved]
  - Wound dehiscence [Recovered/Resolved with Sequelae]
  - Appendicitis [Recovered/Resolved]

NARRATIVE: CASE EVENT DATE: 201407
